FAERS Safety Report 17536561 (Version 1)
Quarter: 2020Q1

REPORT INFORMATION
  Report Type: Spontaneous
  Country: CH (occurrence: CH)
  Receive Date: 20200313
  Receipt Date: 20200313
  Transmission Date: 20200409
  Serious: Yes (Death, Other)
  Sender: FDA-Public Use
  Company Number: CH-AMGEN-CHESP2020039737

PATIENT

DRUGS (3)
  1. DARBEPOETIN ALFA [Suspect]
     Active Substance: DARBEPOETIN ALFA
     Indication: ANAEMIA
     Dosage: 6.75 MICROGRAM/KILOGRAM, Q3WK
     Route: 058
  2. DARBEPOETIN ALFA [Suspect]
     Active Substance: DARBEPOETIN ALFA
     Dosage: 2.25 MICROGRAM/KILOGRAM, QWK
     Route: 058
  3. BLOOD, WHOLE [Concomitant]
     Active Substance: WHOLE BLOOD
     Dosage: UNK

REACTIONS (16)
  - Non-small cell lung cancer [Fatal]
  - Cardiac failure [Fatal]
  - Pulmonary embolism [Unknown]
  - Deep vein thrombosis [Unknown]
  - Haemoglobin decreased [Unknown]
  - Nausea [Unknown]
  - Decreased appetite [Unknown]
  - Metastases to bone [Unknown]
  - Metastases to liver [Unknown]
  - Vomiting [Unknown]
  - Pneumonia [Fatal]
  - Neutropenia [Unknown]
  - Respiratory disorder [Unknown]
  - Blood lactate dehydrogenase increased [Unknown]
  - Phlebitis [Unknown]
  - Fatigue [Unknown]
